FAERS Safety Report 9371802 (Version 1)
Quarter: 2013Q2

REPORT INFORMATION
  Report Type: Spontaneous
  Country: FR (occurrence: FR)
  Receive Date: 20130627
  Receipt Date: 20130627
  Transmission Date: 20140414
  Serious: Yes (Hospitalization)
  Sender: FDA-Public Use
  Company Number: FR-ROXANE LABORATORIES, INC.-2013-RO-01031RO

PATIENT
  Sex: Female

DRUGS (2)
  1. LEVETIRACETAM [Suspect]
  2. LAMOTRIGINE [Suspect]

REACTIONS (1)
  - Pre-eclampsia [Unknown]
